FAERS Safety Report 23144665 (Version 1)
Quarter: 2023Q4

REPORT INFORMATION
  Report Type: Spontaneous
  Country: US (occurrence: None)
  Receive Date: 20231103
  Receipt Date: 20231103
  Transmission Date: 20240110
  Serious: Yes (Other)
  Sender: FDA-Public Use
  Company Number: None

PATIENT
  Sex: Female

DRUGS (7)
  1. DALFAMPRIDINE [Suspect]
     Active Substance: DALFAMPRIDINE
     Indication: Multiple sclerosis
     Dosage: FREQUENCY : DAILY;?
  2. DALFAMPRIDINE [Suspect]
     Active Substance: DALFAMPRIDINE
     Dosage: FREQUENCY : DAILY;?
     Route: 048
     Dates: start: 20181022
  3. AMPYRA [Concomitant]
     Active Substance: DALFAMPRIDINE
  4. MULTIVITAMIN WOMENS [Concomitant]
  5. OCREVUS [Concomitant]
     Active Substance: OCRELIZUMAB
  6. VITAMIN C [Concomitant]
     Active Substance: ASCORBIC ACID
  7. VITAMIN D3 [Concomitant]
     Active Substance: CHOLECALCIFEROL

REACTIONS (3)
  - Fall [None]
  - Multiple sclerosis relapse [None]
  - Therapy interrupted [None]
